FAERS Safety Report 8487413-6 (Version None)
Quarter: 2012Q2

REPORT INFORMATION
  Report Type: 
  Country: None (occurrence: None)
  Receive Date: 20120628
  Receipt Date: 20120628
  Transmission Date: 20120825
  Serious: Yes (Other)
  Sender: FDA-Public Use
  Company Number: None

PATIENT
  Age: 50 Year
  Sex: Female
  Weight: 72.5755 kg

DRUGS (1)
  1. ACEBUTOLOL [Suspect]
     Indication: HEART RATE IRREGULAR
     Dosage: 200MG TWICE DAILY PO
     Route: 048
     Dates: start: 20120620, end: 20120627

REACTIONS (1)
  - DRUG INEFFECTIVE [None]
